FAERS Safety Report 6928069-0 (Version None)
Quarter: 2010Q3

REPORT INFORMATION
  Report Type: 
  Country: None (occurrence: None)
  Receive Date: 20100817
  Receipt Date: 20100806
  Transmission Date: 20110219
  Serious: Yes (Death, Hospitalization, Other)
  Sender: FDA-Public Use
  Company Number: GB-BAXTER-2009BH001944

PATIENT
  Age: 19 Year
  Sex: Female
  Weight: 35 kg

DRUGS (2)
  1. SEVOFLURANE [Suspect]
     Indication: PRODUCT USED FOR UNKNOWN INDICATION
     Route: 055
     Dates: start: 20080601, end: 20080601
  2. ACETAMINOPHEN [Suspect]
     Indication: ARTHRALGIA
     Route: 042
     Dates: start: 20080618, end: 20080622

REACTIONS (3)
  - HEPATIC FAILURE [None]
  - LIVER FUNCTION TEST ABNORMAL [None]
  - OVERDOSE [None]
